FAERS Safety Report 15607403 (Version 1)
Quarter: 2018Q4

REPORT INFORMATION
  Report Type: Spontaneous
  Country: CN (occurrence: CN)
  Receive Date: 20181112
  Receipt Date: 20181112
  Transmission Date: 20190205
  Serious: Yes (Other)
  Sender: FDA-Public Use
  Company Number: CN-JNJFOC-20181110607

PATIENT
  Age: 60 Year
  Sex: Female
  Weight: 45 kg

DRUGS (1)
  1. DUROGESIC D-TRANS [Suspect]
     Active Substance: FENTANYL
     Indication: ANALGESIC THERAPY
     Route: 062
     Dates: start: 20180326, end: 20180329

REACTIONS (3)
  - Incoherent [Not Recovered/Not Resolved]
  - Delirium [Not Recovered/Not Resolved]
  - Dysphoria [Not Recovered/Not Resolved]

NARRATIVE: CASE EVENT DATE: 20180328
